FAERS Safety Report 18497047 (Version 1)
Quarter: 2020Q4

REPORT INFORMATION
  Report Type: Spontaneous
  Country: JP (occurrence: JP)
  Receive Date: 20201112
  Receipt Date: 20201112
  Transmission Date: 20210114
  Serious: Yes (Other)
  Sender: FDA-Public Use
  Company Number: JP-SUN PHARMACEUTICAL INDUSTRIES LTD-2020R1-267517

PATIENT
  Age: 46 Year
  Sex: Female

DRUGS (2)
  1. CARBIDOPA / LEVODOPA [Suspect]
     Active Substance: CARBIDOPA\LEVODOPA
     Indication: MOTOR DYSFUNCTION
     Dosage: UNK, DAILY (100 MG/10 MG X3)
     Route: 065
  2. CARBIDOPA / LEVODOPA [Suspect]
     Active Substance: CARBIDOPA\LEVODOPA
     Dosage: UNK, PRN (100 MG/10 MG)
     Route: 065

REACTIONS (2)
  - Drug ineffective [Unknown]
  - Cerebral disorder [Unknown]
